FAERS Safety Report 22313001 (Version 1)
Quarter: 2023Q2

REPORT INFORMATION
  Report Type: Spontaneous
  Country: DE (occurrence: DE)
  Receive Date: 20230512
  Receipt Date: 20230512
  Transmission Date: 20230721
  Serious: Yes (Other)
  Sender: FDA-Public Use
  Company Number: DE-002147023-NVSC2023DE108223

PATIENT
  Sex: Female

DRUGS (2)
  1. EXELON [Suspect]
     Active Substance: RIVASTIGMINE TARTRATE
     Indication: Product used for unknown indication
     Dosage: UNK (13.3 MG/24 STUNDEN TRANSDERMALES PFLASTER)
     Route: 065
  2. EXELON [Suspect]
     Active Substance: RIVASTIGMINE TARTRATE
     Dosage: UNK (4,6 MG/24 STUNDEN TRANSDERMALES PFLASTER)
     Route: 065
     Dates: start: 2022

REACTIONS (10)
  - Epilepsy [Unknown]
  - Drug intolerance [Unknown]
  - Blood pressure decreased [Unknown]
  - Asthenia [Unknown]
  - Disease progression [Unknown]
  - Aphasia [Unknown]
  - Cognitive disorder [Unknown]
  - Cardiovascular disorder [Unknown]
  - Wrong technique in product usage process [Unknown]
  - Product administration error [Unknown]
